FAERS Safety Report 12430528 (Version 1)
Quarter: 2016Q2

REPORT INFORMATION
  Report Type: Spontaneous
  Country: US (occurrence: US)
  Receive Date: 20160602
  Receipt Date: 20160602
  Transmission Date: 20160815
  Serious: Yes (Hospitalization, Other)
  Sender: FDA-Public Use
  Company Number: US-ABBVIE-16P-163-1643185-00

PATIENT
  Sex: Female

DRUGS (3)
  1. LUPRON [Suspect]
     Active Substance: LEUPROLIDE ACETATE
     Indication: ENDOMETRIOSIS
     Route: 050
  2. DANAZOL. [Suspect]
     Active Substance: DANAZOL
     Indication: ENDOMETRIOSIS
     Route: 065
  3. DEPO-PROVERA [Suspect]
     Active Substance: MEDROXYPROGESTERONE ACETATE
     Indication: ENDOMETRIOSIS
     Route: 065

REACTIONS (8)
  - Ovarian cyst [Unknown]
  - Mass [Unknown]
  - Fatigue [Unknown]
  - Pain [Unknown]
  - Abdominal distension [Unknown]
  - Swelling [Unknown]
  - Adverse drug reaction [Unknown]
  - Oophorectomy [Unknown]

NARRATIVE: CASE EVENT DATE: 201501
